FAERS Safety Report 11624374 (Version 1)
Quarter: 2015Q4

REPORT INFORMATION
  Report Type: Spontaneous
  Country: CN (occurrence: CN)
  Receive Date: 20151013
  Receipt Date: 20151013
  Transmission Date: 20160304
  Serious: Yes (Hospitalization)
  Sender: FDA-Public Use
  Company Number: CN-ACCORD-034167

PATIENT
  Age: 47 Year
  Sex: Male

DRUGS (2)
  1. CAPECITABINE. [Suspect]
     Active Substance: CAPECITABINE
     Indication: CHEMOTHERAPY
     Dosage: 3.5 PO DAY 1-DAY 14
     Route: 048
  2. OXALIPLATIN. [Suspect]
     Active Substance: OXALIPLATIN
     Indication: CHEMOTHERAPY
     Dosage: 0.2 IVGTT DAY 1

REACTIONS (4)
  - Stenotrophomonas infection [Recovered/Resolved]
  - Candida infection [Recovered/Resolved]
  - Enterobacter infection [Recovered/Resolved]
  - Urinary tract infection [Recovered/Resolved]
